FAERS Safety Report 11752141 (Version 1)
Quarter: 2015Q4

REPORT INFORMATION
  Report Type: Report from Study
  Country: US (occurrence: US)
  Receive Date: 20151118
  Receipt Date: 20151118
  Transmission Date: 20160304
  Serious: Yes (Hospitalization)
  Sender: FDA-Public Use
  Company Number: US-ACTELION-A-US2015-127116

PATIENT
  Age: 57 Year
  Sex: Female

DRUGS (5)
  1. ADCIRCA [Concomitant]
     Active Substance: TADALAFIL
     Dosage: 40 MG, QD
     Dates: start: 20150304
  2. VELETRI [Suspect]
     Active Substance: EPOPROSTENOL
     Indication: COR PULMONALE CHRONIC
  3. TRACLEER [Suspect]
     Active Substance: BOSENTAN
     Indication: PULMONARY ARTERIAL HYPERTENSION
     Dosage: 125 MG, BID
     Route: 048
     Dates: start: 20120227
  4. TRACLEER [Suspect]
     Active Substance: BOSENTAN
     Indication: COR PULMONALE CHRONIC
     Dosage: UNK
     Route: 048
     Dates: start: 20120207
  5. VELETRI [Suspect]
     Active Substance: EPOPROSTENOL
     Indication: PULMONARY ARTERIAL HYPERTENSION
     Dosage: 35 NG/KG, PER MIN
     Route: 042
     Dates: start: 20140410

REACTIONS (3)
  - Asthenia [Not Recovered/Not Resolved]
  - Dehydration [Not Recovered/Not Resolved]
  - Diarrhoea [Not Recovered/Not Resolved]

NARRATIVE: CASE EVENT DATE: 20151103
